FAERS Safety Report 8430675-1 (Version None)
Quarter: 2012Q2

REPORT INFORMATION
  Report Type: 
  Country: None (occurrence: None)
  Receive Date: 20120323
  Receipt Date: 20110420
  Transmission Date: 20120825
  Serious: Yes (Disabling)
  Sender: FDA-Public Use
  Company Number: 163-21880-11042876

PATIENT
  Age: 87 Year
  Sex: Female
  Weight: 71.7 kg

DRUGS (1)
  1. REVLIMID [Suspect]
     Indication: MULTIPLE MYELOMA
     Dosage: 15 MG, EVERY OTHER DAY, PO
     Route: 048
     Dates: start: 20110212

REACTIONS (2)
  - FATIGUE [None]
  - DIARRHOEA [None]
